FAERS Safety Report 8967670 (Version 1)
Quarter: 2012Q4

REPORT INFORMATION
  Report Type: Spontaneous
  Country: US (occurrence: None)
  Receive Date: 20121206
  Receipt Date: 20121206
  Transmission Date: 20130627
  Serious: Yes (Hospitalization, Other)
  Sender: FDA-Public Use
  Company Number: 100317-000059

PATIENT
  Sex: Female

DRUGS (2)
  1. MEANINGFUL BEAUTY MAINTENANCE 1 SPF 20 [Suspect]
     Dosage: Once daily dermal
     Dates: start: 201001, end: 201003
  2. MEANINGFUL BEAUTY MAINTENANCE 1 PF 20 [Suspect]
     Dosage: Once daily dermal
     Dates: start: 201001, end: 201003

REACTIONS (3)
  - Pruritus [None]
  - Swelling face [None]
  - Mass [None]
